FAERS Safety Report 7259044-7 (Version None)
Quarter: 2011Q1

REPORT INFORMATION
  Report Type: 
  Country: None (occurrence: None)
  Receive Date: 20110129
  Receipt Date: 20100616
  Transmission Date: 20110831
  Serious: No
  Sender: FDA-Public Use
  Company Number: US-ABBOTT-10P-163-0652866-00

PATIENT
  Sex: Male
  Weight: 86.26 kg

DRUGS (5)
  1. TRICOR [Concomitant]
     Indication: BLOOD CHOLESTEROL INCREASED
     Route: 048
  2. ATENOLOL [Concomitant]
     Indication: HYPERTENSION
     Route: 048
  3. HUMIRA [Suspect]
     Indication: PSORIASIS
     Route: 058
     Dates: start: 20100513, end: 20100513
  4. HUMIRA [Suspect]
     Route: 058
     Dates: start: 20100520, end: 20100520
  5. NIFEDIPINE [Concomitant]
     Indication: HYPERTENSION
     Route: 048

REACTIONS (13)
  - PSORIASIS [None]
  - ERYTHEMA [None]
  - HAEMORRHAGE [None]
  - FEELING COLD [None]
  - BLOOD POTASSIUM DECREASED [None]
  - BLOOD URIC ACID INCREASED [None]
  - EXCORIATION [None]
  - SKIN EXFOLIATION [None]
  - WOUND DRAINAGE [None]
  - GAIT DISTURBANCE [None]
  - PRURITUS [None]
  - SWELLING [None]
  - PAIN [None]
